FAERS Safety Report 9168961 (Version 1)
Quarter: 2013Q1

REPORT INFORMATION
  Report Type: Spontaneous
  Country: FR (occurrence: FR)
  Receive Date: 20130318
  Receipt Date: 20130318
  Transmission Date: 20140127
  Serious: Yes (Death, Life-Threatening)
  Sender: FDA-Public Use
  Company Number: FR-PFIZER INC-2013085541

PATIENT
  Age: 47 Year
  Sex: Male
  Weight: 100 kg

DRUGS (5)
  1. VFEND [Suspect]
     Indication: ASPERGILLUS INFECTION
     Dosage: 600 MG, 2X/DAY
     Route: 041
     Dates: start: 20130109, end: 20130109
  2. VFEND [Suspect]
     Dosage: 400 MG, 2X/DAY
     Route: 041
     Dates: start: 20130110, end: 20130117
  3. TRUVADA [Suspect]
     Indication: HIV INFECTION
     Dosage: 1 DF, DAILY
     Route: 048
     Dates: end: 20130118
  4. NORVIR [Concomitant]
     Indication: HIV INFECTION
     Dosage: UNK
     Dates: end: 20130118
  5. PREZISTA [Concomitant]
     Indication: HIV INFECTION
     Dosage: UNK
     Dates: end: 20130118

REACTIONS (5)
  - Drug level above therapeutic [Recovered/Resolved]
  - Liver disorder [Fatal]
  - Renal failure acute [Fatal]
  - Hepatic failure [Fatal]
  - Hepatorenal syndrome [Fatal]
